FAERS Safety Report 10027939 (Version 3)
Quarter: 2014Q2

REPORT INFORMATION
  Report Type: Report from Study
  Country: US (occurrence: US)
  Receive Date: 20140321
  Receipt Date: 20140401
  Transmission Date: 20141212
  Serious: Yes (Death, Hospitalization)
  Sender: FDA-Public Use
  Company Number: US-SA-2014SA009697

PATIENT
  Age: 48 Year
  Sex: Female

DRUGS (4)
  1. AUBAGIO [Suspect]
     Indication: MULTIPLE SCLEROSIS
     Route: 048
     Dates: start: 20130906
  2. AUBAGIO [Suspect]
     Indication: MULTIPLE SCLEROSIS
     Route: 048
     Dates: start: 20140116, end: 20140306
  3. OXYBUTYNIN [Suspect]
     Indication: PRODUCT USED FOR UNKNOWN INDICATION
     Route: 048
  4. NEURONTIN [Concomitant]
     Route: 048

REACTIONS (7)
  - Sepsis [Fatal]
  - Urinary tract infection [Fatal]
  - Renal failure [Unknown]
  - Abdominal distension [Unknown]
  - Urinary incontinence [Unknown]
  - Secondary progressive multiple sclerosis [Unknown]
  - Tremor [Unknown]
